FAERS Safety Report 11876130 (Version 1)
Quarter: 2015Q4

REPORT INFORMATION
  Report Type: Spontaneous
  Country: US (occurrence: US)
  Receive Date: 20151229
  Receipt Date: 20151229
  Transmission Date: 20160305
  Serious: Yes (Other)
  Sender: FDA-Public Use
  Company Number: US-TEVA-621671ACC

PATIENT
  Age: 38 Year
  Sex: Female
  Weight: 61.29 kg

DRUGS (2)
  1. TAMOXIFEN [Concomitant]
     Active Substance: TAMOXIFEN
     Indication: INTRADUCTAL PROLIFERATIVE BREAST LESION
  2. PARAGARD T 380A [Suspect]
     Active Substance: COPPER
     Indication: CONTRACEPTION
     Dates: start: 20151210, end: 20151216

REACTIONS (1)
  - Device dislocation [Recovered/Resolved]

NARRATIVE: CASE EVENT DATE: 20151215
